FAERS Safety Report 6339283-X (Version None)
Quarter: 2009Q3

REPORT INFORMATION
  Report Type: 
  Country: None (occurrence: None)
  Receive Date: 20090903
  Receipt Date: 20090829
  Transmission Date: 20100115
  Serious: Yes (Other)
  Sender: FDA-Public Use
  Company Number: A0805412A

PATIENT
  Age: 78 Year
  Sex: Male

DRUGS (4)
  1. COREG [Suspect]
     Indication: DRUG USE FOR UNKNOWN INDICATION
     Dosage: 6.25MG TWICE PER DAY
  2. COREG CR [Suspect]
     Indication: DRUG USE FOR UNKNOWN INDICATION
     Dosage: 20MG PER DAY
  3. ACE INHIBITOR [Concomitant]
  4. UNKNOWN [Concomitant]

REACTIONS (5)
  - AORTIC VALVE REPLACEMENT [None]
  - CAROTID ENDARTERECTOMY [None]
  - DEPRESSION [None]
  - LETHARGY [None]
  - SOMNOLENCE [None]
